FAERS Safety Report 14665261 (Version 4)
Quarter: 2022Q2

REPORT INFORMATION
  Report Type: Spontaneous
  Country: US (occurrence: None)
  Receive Date: 20180321
  Receipt Date: 20220621
  Transmission Date: 20220721
  Serious: Yes (Hospitalization, Other)
  Sender: FDA-Public Use
  Company Number: 2018SE33867

PATIENT
  Age: 62 Year
  Sex: Female
  Weight: 82.6 kg

DRUGS (94)
  1. NEXIUM [Suspect]
     Active Substance: ESOMEPRAZOLE MAGNESIUM
     Indication: Gastrooesophageal reflux disease
     Route: 048
     Dates: start: 2001, end: 2017
  2. NEXIUM [Suspect]
     Active Substance: ESOMEPRAZOLE MAGNESIUM
     Indication: Gastrooesophageal reflux disease
     Route: 048
     Dates: start: 20110317, end: 20161106
  3. NEXIUM [Suspect]
     Active Substance: ESOMEPRAZOLE MAGNESIUM
     Indication: Gastrooesophageal reflux disease
     Route: 048
     Dates: start: 20010911
  4. NEXIUM [Suspect]
     Active Substance: ESOMEPRAZOLE MAGNESIUM
     Indication: Gastrooesophageal reflux disease
     Route: 048
     Dates: start: 20180410
  5. NEXIUM [Suspect]
     Active Substance: ESOMEPRAZOLE MAGNESIUM
     Indication: Gastrooesophageal reflux disease
     Route: 048
     Dates: start: 20190918
  6. PRILOSEC [Suspect]
     Active Substance: OMEPRAZOLE MAGNESIUM
     Indication: Gastrooesophageal reflux disease
     Dosage: GENERIC
     Route: 048
     Dates: start: 20050102, end: 20110305
  7. PRILOSEC [Suspect]
     Active Substance: OMEPRAZOLE MAGNESIUM
     Indication: Gastrooesophageal reflux disease
     Route: 048
     Dates: start: 20050721, end: 20060117
  8. PRILOSEC OTC [Suspect]
     Active Substance: OMEPRAZOLE MAGNESIUM
     Indication: Gastrooesophageal reflux disease
     Route: 048
     Dates: start: 2001, end: 2017
  9. PRILOSEC OTC [Suspect]
     Active Substance: OMEPRAZOLE MAGNESIUM
     Indication: Gastrooesophageal reflux disease
     Route: 048
     Dates: start: 20050721
  10. PRILOSEC OTC [Suspect]
     Active Substance: OMEPRAZOLE MAGNESIUM
     Indication: Gastrooesophageal reflux disease
     Route: 048
     Dates: start: 20050721, end: 20060117
  11. PREVACID [Suspect]
     Active Substance: LANSOPRAZOLE
     Indication: Gastrooesophageal reflux disease
     Route: 065
     Dates: start: 2001, end: 2017
  12. PREVACID [Suspect]
     Active Substance: LANSOPRAZOLE
     Indication: Gastrooesophageal reflux disease
     Route: 065
     Dates: start: 20010406, end: 20010725
  13. PREVACID [Suspect]
     Active Substance: LANSOPRAZOLE
     Indication: Gastrooesophageal reflux disease
     Route: 048
     Dates: start: 20010406
  14. PREVACID [Suspect]
     Active Substance: LANSOPRAZOLE
     Indication: Gastrooesophageal reflux disease
     Route: 048
     Dates: start: 20010406, end: 20010725
  15. PROTONIX [Suspect]
     Active Substance: PANTOPRAZOLE SODIUM
     Indication: Gastrooesophageal reflux disease
     Route: 065
     Dates: start: 2001, end: 2017
  16. PROTONIX [Suspect]
     Active Substance: PANTOPRAZOLE SODIUM
     Indication: Gastrooesophageal reflux disease
     Dosage: GENERIC
     Route: 065
     Dates: start: 200712, end: 20140430
  17. PROTONIX [Suspect]
     Active Substance: PANTOPRAZOLE SODIUM
     Indication: Gastrooesophageal reflux disease
     Route: 048
     Dates: start: 20070120, end: 20140430
  18. PROTONIX [Suspect]
     Active Substance: PANTOPRAZOLE SODIUM
     Indication: Gastrooesophageal reflux disease
     Route: 048
     Dates: start: 20150308, end: 20150317
  19. VITAMIN D [Concomitant]
     Active Substance: VITAMIN D NOS
     Indication: Vitamin D deficiency
     Route: 065
     Dates: start: 2014
  20. ACETAMINOPHEN [Concomitant]
     Active Substance: ACETAMINOPHEN
     Indication: Pain
     Route: 065
  21. FAMOTIDINE [Concomitant]
     Active Substance: FAMOTIDINE
     Route: 065
     Dates: start: 20030129, end: 20030812
  22. TUMS [Concomitant]
     Active Substance: CALCIUM CARBONATE
     Dosage: 1.0DF AS REQUIRED
     Route: 065
     Dates: start: 2013, end: 2016
  23. RENVELA [Concomitant]
     Active Substance: SEVELAMER CARBONATE
     Indication: Blood phosphorus
     Route: 065
     Dates: start: 2012
  24. KLONOPIN [Concomitant]
     Active Substance: CLONAZEPAM
     Indication: Depression
     Route: 065
     Dates: start: 200608
  25. ATELOL [Concomitant]
     Indication: Hypertension
     Route: 065
     Dates: start: 200608
  26. SENSIPAR [Concomitant]
     Active Substance: CINACALCET HYDROCHLORIDE
     Indication: Thyroid disorder
     Route: 065
     Dates: start: 20140527
  27. ALLOPURINOL [Concomitant]
     Active Substance: ALLOPURINOL
     Indication: Gout
     Route: 065
     Dates: start: 20140805
  28. FLEXERIL [Concomitant]
     Active Substance: CYCLOBENZAPRINE HYDROCHLORIDE
     Indication: Muscle spasms
     Route: 065
     Dates: start: 20140605
  29. LEVOTHYROXINE [Concomitant]
     Active Substance: LEVOTHYROXINE
     Indication: Thyroid disorder
     Route: 065
     Dates: start: 20150320, end: 20161106
  30. NORCO [Concomitant]
     Active Substance: ACETAMINOPHEN\HYDROCODONE BITARTRATE
     Indication: Pain
     Route: 065
     Dates: start: 20140605
  31. MELOXICAM [Concomitant]
     Active Substance: MELOXICAM
     Indication: Pain
     Route: 065
     Dates: start: 201404
  32. LISINOPRIL [Concomitant]
     Active Substance: LISINOPRIL
     Indication: Hypertension
     Route: 065
     Dates: start: 20020927
  33. AMITRIPTYLINE [Concomitant]
     Active Substance: AMITRIPTYLINE
     Indication: Depression
     Route: 065
     Dates: start: 20010323, end: 20050301
  34. AMOXIL [Concomitant]
     Active Substance: AMOXICILLIN
     Route: 048
     Dates: start: 20000117
  35. HYDROCHLOROTHIAZIDE [Concomitant]
     Active Substance: HYDROCHLOROTHIAZIDE
     Route: 048
     Dates: start: 20000201
  36. TRAZODONE [Concomitant]
     Active Substance: TRAZODONE HYDROCHLORIDE
     Route: 048
     Dates: start: 20000201
  37. BENZTROPINE MESYLATE [Concomitant]
     Active Substance: BENZTROPINE MESYLATE
     Route: 048
     Dates: start: 20000201
  38. HALOPERIDOL [Concomitant]
     Active Substance: HALOPERIDOL
     Route: 048
     Dates: start: 20000201
  39. PROCARDIA [Concomitant]
     Active Substance: NIFEDIPINE
     Route: 048
     Dates: start: 20000225
  40. INDOMETHACIN [Concomitant]
     Active Substance: INDOMETHACIN
     Route: 048
     Dates: start: 20000225
  41. DIFLUCAN [Concomitant]
     Active Substance: FLUCONAZOLE
     Route: 048
     Dates: start: 20020412
  42. TEQUIN [Concomitant]
     Active Substance: GATIFLOXACIN
     Route: 048
     Dates: start: 20020608
  43. BUMETANIDE [Concomitant]
     Active Substance: BUMETANIDE
     Route: 048
     Dates: start: 20020613
  44. ZESTORETIC [Concomitant]
     Active Substance: HYDROCHLOROTHIAZIDE\LISINOPRIL
     Dosage: 20-25 MG
     Route: 048
     Dates: start: 20020702
  45. PROBENECID [Concomitant]
     Active Substance: PROBENECID
     Route: 048
     Dates: start: 20021014
  46. DIPHENOXYLATE-ATRO [Concomitant]
     Route: 048
     Dates: start: 20030809
  47. TERAZOL [Concomitant]
     Active Substance: TERCONAZOLE
     Route: 048
     Dates: start: 20030809
  48. METRONIDAZOLE [Concomitant]
     Active Substance: METRONIDAZOLE
     Route: 048
     Dates: start: 20030923
  49. CHLORDIAZEPOXIDE-C [Concomitant]
     Route: 048
     Dates: start: 20031010
  50. BISOPROLOL FUMARATE\HYDROCHLOROTHIAZIDE [Concomitant]
     Active Substance: BISOPROLOL FUMARATE\HYDROCHLOROTHIAZIDE
     Route: 048
     Dates: start: 20031115
  51. AVELOX [Concomitant]
     Active Substance: MOXIFLOXACIN HYDROCHLORIDE
     Route: 048
     Dates: start: 20040209
  52. CIPROFLOXACIN HYDROCHLORIDE [Concomitant]
     Active Substance: CIPROFLOXACIN HYDROCHLORIDE
     Route: 048
     Dates: start: 20040813
  53. COLCHICINE [Concomitant]
     Active Substance: COLCHICINE
     Route: 048
     Dates: start: 20050213
  54. FAMVIR [Concomitant]
     Active Substance: FAMCICLOVIR
     Route: 048
     Dates: start: 20050219
  55. AMBIEN [Concomitant]
     Active Substance: ZOLPIDEM TARTRATE
     Route: 048
     Dates: start: 20060102
  56. SEROQUEL [Concomitant]
     Active Substance: QUETIAPINE FUMARATE
     Route: 048
     Dates: start: 20060126
  57. RISPERDAL [Concomitant]
     Active Substance: RISPERIDONE
     Route: 048
     Dates: start: 20060126
  58. HYZAAR [Concomitant]
     Active Substance: HYDROCHLOROTHIAZIDE\LOSARTAN POTASSIUM
     Route: 048
     Dates: start: 20060126
  59. CARDIZEM [Concomitant]
     Active Substance: DILTIAZEM HYDROCHLORIDE
     Route: 048
     Dates: start: 20061016
  60. CARDIZEM [Concomitant]
     Active Substance: DILTIAZEM HYDROCHLORIDE
  61. OSCIMIN [Concomitant]
     Active Substance: HYOSCYAMINE SULFATE
     Route: 048
     Dates: start: 20061101
  62. NITROF [Concomitant]
     Route: 048
     Dates: start: 20070118
  63. BENICAR HCT [Concomitant]
     Active Substance: HYDROCHLOROTHIAZIDE\OLMESARTAN MEDOXOMIL
     Dosage: 40-25 MG
     Route: 048
     Dates: start: 20070314
  64. CLARITHROMYCIN [Concomitant]
     Active Substance: CLARITHROMYCIN
     Route: 048
     Dates: start: 20070730
  65. TAMIFLU [Concomitant]
     Active Substance: OSELTAMIVIR PHOSPHATE
     Route: 048
     Dates: start: 20080114
  66. METOPROLOL [Concomitant]
     Active Substance: METOPROLOL
     Route: 048
     Dates: start: 20080607
  67. METHYLPREDNISOLONE [Concomitant]
     Active Substance: METHYLPREDNISOLONE
     Route: 048
     Dates: start: 20080708
  68. OXYCODONE [Concomitant]
     Active Substance: OXYCODONE
     Route: 048
     Dates: start: 20080707
  69. FEXOFENAD HCL [Concomitant]
     Route: 048
     Dates: start: 20091026
  70. MIRTAZAPINE [Concomitant]
     Active Substance: MIRTAZAPINE
     Route: 048
     Dates: start: 20110323
  71. AMLODIPINE [Concomitant]
     Active Substance: AMLODIPINE BESYLATE
     Route: 048
     Dates: start: 20110811
  72. BYSTOLIC [Concomitant]
     Active Substance: NEBIVOLOL HYDROCHLORIDE
     Route: 048
     Dates: start: 20110811
  73. AZITHROMYCIN [Concomitant]
     Active Substance: AZITHROMYCIN
     Route: 048
     Dates: start: 20120102
  74. PREDNISONE [Concomitant]
     Active Substance: PREDNISONE
     Route: 048
     Dates: start: 20140625
  75. TRAMADOL [Concomitant]
     Active Substance: TRAMADOL
     Route: 048
     Dates: start: 20140625
  76. FLUTICASONE PROPIONATE [Concomitant]
     Active Substance: FLUTICASONE PROPIONATE
     Route: 048
     Dates: start: 20141015
  77. EPOGEN [Concomitant]
     Active Substance: ERYTHROPOIETIN
     Dosage: 6000 UNITS IV PUSH 3X QW
     Route: 042
     Dates: start: 20140904
  78. HECTOROL [Concomitant]
     Active Substance: DOXERCALCIFEROL
     Dosage: 2.5 MCG IV PUSH 3XQW
     Route: 042
     Dates: start: 20160816
  79. BANOPHEN [Concomitant]
     Active Substance: DIPHENHYDRAMINE HYDROCHLORIDE
  80. VANCOMYCIN [Concomitant]
     Active Substance: VANCOMYCIN
  81. LINCOCIN [Concomitant]
     Active Substance: LINCOMYCIN
  82. POTASSIUM CHLORIDE [Concomitant]
     Active Substance: POTASSIUM CHLORIDE
  83. XENICAL [Concomitant]
     Active Substance: ORLISTAT
  84. PROMETHAZINE [Concomitant]
     Active Substance: PROMETHAZINE HYDROCHLORIDE
  85. ZYRTEC [Concomitant]
     Active Substance: CETIRIZINE HYDROCHLORIDE
  86. HYDROXYZINE [Concomitant]
     Active Substance: HYDROXYZINE HYDROCHLORIDE
  87. TRIAMCINOLONE [Concomitant]
     Active Substance: TRIAMCINOLONE
  88. DOXYCYCLINE [Concomitant]
     Active Substance: DOXYCYCLINE
  89. GABAPENTIN [Concomitant]
     Active Substance: GABAPENTIN
  90. VENTOLIN HFA [Concomitant]
     Active Substance: ALBUTEROL SULFATE
  91. HEPARIN [Concomitant]
     Active Substance: HEPARIN SODIUM
  92. ONDANSETRON [Concomitant]
     Active Substance: ONDANSETRON
  93. HYDRALAZINE [Concomitant]
     Active Substance: HYDRALAZINE HYDROCHLORIDE
  94. FLUCONAZOLE [Concomitant]
     Active Substance: FLUCONAZOLE

REACTIONS (7)
  - Acute kidney injury [Not Recovered/Not Resolved]
  - Chronic kidney disease [Not Recovered/Not Resolved]
  - End stage renal disease [Not Recovered/Not Resolved]
  - Nephrogenic anaemia [Unknown]
  - Renal failure [Unknown]
  - Hyperparathyroidism secondary [Unknown]
  - Chronic kidney disease-mineral and bone disorder [Unknown]

NARRATIVE: CASE EVENT DATE: 20100101
